FAERS Safety Report 18351612 (Version 1)
Quarter: 2020Q4

REPORT INFORMATION
  Report Type: Spontaneous
  Country: US (occurrence: US)
  Receive Date: 20201006
  Receipt Date: 20201006
  Transmission Date: 20210114
  Serious: Yes (Other)
  Sender: FDA-Public Use
  Company Number: US-AMNEAL PHARMACEUTICALS-2020-AMRX-01852

PATIENT
  Sex: Female
  Weight: 7.71 kg

DRUGS (3)
  1. VIGABATRIN. [Suspect]
     Active Substance: VIGABATRIN
     Indication: INFANTILE SPASMS
     Dosage: 150 MILLIGRAM, BID (MIX 1 PACKET IN 10 ML OF WATER AND GIVE/TAKE 3 ML)
     Route: 048
     Dates: start: 20200623, end: 202006
  2. VIGABATRIN. [Suspect]
     Active Substance: VIGABATRIN
     Dosage: 300 MILLIGRAM, BID (MIX 1 PACKET IN 10 ML OF WATER AND GIVE/TAKE 6 ML)
     Route: 048
     Dates: start: 202006, end: 2020
  3. OXCARBAZEPINE. [Concomitant]
     Active Substance: OXCARBAZEPINE
     Indication: PRODUCT USED FOR UNKNOWN INDICATION
     Dosage: UNK
     Route: 065

REACTIONS (3)
  - Seizure [Unknown]
  - Therapy cessation [Unknown]
  - Vomiting [Unknown]

NARRATIVE: CASE EVENT DATE: 2020
